FAERS Safety Report 19088492 (Version 4)
Quarter: 2023Q2

REPORT INFORMATION
  Report Type: Report from Study
  Country: AU (occurrence: AU)
  Receive Date: 20210402
  Receipt Date: 20230601
  Transmission Date: 20230722
  Serious: Yes (Hospitalization)
  Sender: FDA-Public Use
  Company Number: AU-ABBVIE-21P-008-3834462-00

PATIENT
  Age: 79 Year
  Sex: Male

DRUGS (17)
  1. VENETOCLAX [Suspect]
     Active Substance: VENETOCLAX
     Indication: Plasma cell myeloma
     Dosage: 28 DAY CYCLE
     Route: 048
     Dates: start: 20190222, end: 20210324
  2. VENETOCLAX [Suspect]
     Active Substance: VENETOCLAX
     Indication: Plasma cell myeloma
     Dosage: 28 DAY CYCLE
     Route: 048
     Dates: start: 20210422
  3. DARATUMUMAB [Suspect]
     Active Substance: DARATUMUMAB
     Indication: Plasma cell myeloma
     Dosage: CYCLE 1 TO 3 (21 DAY CYCLES): DAYS 1, 8, 15?CYCLE 4 TO 8 (21 DAY CYCLES: DAYS 1?CYCLE 9+ (28 DAY ...
     Route: 058
     Dates: start: 20190222, end: 20210225
  4. DARATUMUMAB [Suspect]
     Active Substance: DARATUMUMAB
     Indication: Plasma cell myeloma
     Dosage: CYCLE 1 TO 3 (21 DAY CYCLES): DAYS 1, 8, 15?CYCLE 4 TO 8 (21 DAY CYCLES: DAYS 1?CYCLE 9+ (28 DAY ...
     Route: 058
     Dates: start: 20210422
  5. BORTEZOMIB [Suspect]
     Active Substance: BORTEZOMIB
     Indication: Plasma cell myeloma
     Dosage: CYCLES 1-8: DAYS 1,4,8 AND 11
     Route: 058
     Dates: start: 20190222, end: 20190802
  6. DEXAMETHASONE [Suspect]
     Active Substance: DEXAMETHASONE
     Indication: Plasma cell myeloma
     Dosage: C1-3: 20MG ON D1, 2,4,5,8,9,11,12 AND 15; C4-8: 20MG ON D1, 2,4,5,8,9,11 AND12; C9+: 20 MG ON D1 ...
     Route: 048
     Dates: start: 20190222, end: 20210318
  7. DEXAMETHASONE [Suspect]
     Active Substance: DEXAMETHASONE
     Indication: Plasma cell myeloma
     Dosage: C1-3: 20MG ON D1, 2,4,5,8,9,11,12 AND 15; C4-8: 20MG ON D1, 2,4,5,8,9,11 AND12; C9+: 20 MG ON D1 ...
     Route: 048
     Dates: start: 20210422
  8. VALACYCLOVIR [Concomitant]
     Active Substance: VALACYCLOVIR HYDROCHLORIDE
     Indication: Antiviral prophylaxis
     Route: 048
     Dates: start: 2017
  9. OMEPRAZOLE [Concomitant]
     Active Substance: OMEPRAZOLE
     Indication: Gastrooesophageal reflux prophylaxis
     Route: 048
     Dates: start: 20190222
  10. COLOXYL AND SENNA [Concomitant]
     Indication: Constipation
     Dosage: TIME INTERVAL: AS NECESSARY
     Route: 048
     Dates: start: 20190314
  11. BACTRIM [Concomitant]
     Active Substance: SULFAMETHOXAZOLE\TRIMETHOPRIM
     Indication: Antibiotic prophylaxis
     Dosage: MONDAY/WEDNESDAY/FRIDAY
     Route: 048
     Dates: start: 20190404
  12. AMOXICILLIN\CLAVULANATE POTASSIUM [Concomitant]
     Active Substance: AMOXICILLIN\CLAVULANATE POTASSIUM
     Indication: Antibiotic prophylaxis
     Route: 048
     Dates: start: 20190606
  13. ACETAMINOPHEN [Concomitant]
     Active Substance: ACETAMINOPHEN
     Indication: Premedication
     Dosage: TIME INTERVAL: AS NECESSARY
     Route: 048
     Dates: start: 20190222
  14. CETIRIZINE [Concomitant]
     Active Substance: CETIRIZINE HYDROCHLORIDE
     Indication: Premedication
     Dosage: TIME INTERVAL: AS NECESSARY
     Route: 048
     Dates: start: 20190222
  15. ZOMETA [Concomitant]
     Active Substance: ZOLEDRONIC ACID
     Indication: Osteoporosis
     Route: 042
     Dates: start: 20190222
  16. ALLOPURINOL [Concomitant]
     Active Substance: ALLOPURINOL
     Indication: Renal lithiasis prophylaxis
     Route: 048
     Dates: start: 2013
  17. PRIVIGEN [Concomitant]
     Active Substance: HUMAN IMMUNOGLOBULIN G
     Indication: Product used for unknown indication

REACTIONS (1)
  - Sepsis [Recovered/Resolved]

NARRATIVE: CASE EVENT DATE: 20210325
